FAERS Safety Report 11184516 (Version 1)
Quarter: 2015Q2

REPORT INFORMATION
  Report Type: Spontaneous
  Country: GB (occurrence: GB)
  Receive Date: 20150612
  Receipt Date: 20150612
  Transmission Date: 20150821
  Serious: Yes (Hospitalization, Other)
  Sender: FDA-Public Use
  Company Number: GB-PFIZER INC-2015193127

PATIENT
  Age: 42 Year
  Sex: Male

DRUGS (2)
  1. SULFASALAZINE. [Suspect]
     Active Substance: SULFASALAZINE
     Indication: PSORIATIC ARTHROPATHY
     Dosage: UNK
     Dates: start: 200504
  2. IBUPROFEN. [Concomitant]
     Active Substance: IBUPROFEN
     Dosage: UNK

REACTIONS (17)
  - Idiosyncratic drug reaction [Recovering/Resolving]
  - Hypersensitivity [Recovering/Resolving]
  - Pancytopenia [Recovering/Resolving]
  - Blood albumin decreased [Recovering/Resolving]
  - C-reactive protein increased [Recovering/Resolving]
  - Rash [Recovering/Resolving]
  - Lymphadenopathy [Recovering/Resolving]
  - Staphylococcal sepsis [Recovering/Resolving]
  - Hepatosplenomegaly [Recovering/Resolving]
  - Oedema peripheral [Recovering/Resolving]
  - Eosinophilia [Recovering/Resolving]
  - Staphylococcal infection [Recovering/Resolving]
  - Proteinuria [Recovering/Resolving]
  - Hepatic enzyme increased [Recovering/Resolving]
  - Tubulointerstitial nephritis [Recovering/Resolving]
  - Pyrexia [Recovering/Resolving]
  - Erythema [Recovering/Resolving]

NARRATIVE: CASE EVENT DATE: 2005
